FAERS Safety Report 8988885 (Version 1)
Quarter: 2012Q4

REPORT INFORMATION
  Report Type: Report from Study
  Country: US (occurrence: US)
  Receive Date: 20121227
  Receipt Date: 20121227
  Transmission Date: 20130627
  Serious: Yes (Hospitalization)
  Sender: FDA-Public Use
  Company Number: US-ABBOTT-12P-163-1024843-00

PATIENT
  Age: 45 Year
  Sex: Male

DRUGS (18)
  1. HUMIRA [Suspect]
     Indication: CROHN^S DISEASE
     Dates: start: 20120924
  2. HUMIRA [Suspect]
     Dates: start: 20121210
  3. PREDNISONE [Suspect]
     Indication: PRODUCT USED FOR UNKNOWN INDICATION
     Dates: end: 20121206
  4. PREDNISONE [Suspect]
     Dates: start: 20121206
  5. LISINOPRIL [Suspect]
     Indication: PRODUCT USED FOR UNKNOWN INDICATION
     Dates: end: 20121206
  6. LISINOPRIL [Suspect]
     Dates: start: 20121206
  7. ASACOL [Concomitant]
     Indication: CROHN^S DISEASE
  8. LORATADINE [Concomitant]
     Indication: HYPERSENSITIVITY
     Dosage: 10 mg dailiy
  9. XANAX [Concomitant]
     Indication: ANXIETY
     Dosage: As needed
  10. HYDROCODONE [Concomitant]
     Indication: PAIN
     Dosage: 10/325 mg one tab every 8 hrs as needed
  11. DULERA [Concomitant]
     Indication: ASTHMA
     Route: 055
  12. DULERA [Concomitant]
     Indication: CHRONIC OBSTRUCTIVE PULMONARY DISEASE
  13. XANAX [Concomitant]
     Indication: SLEEP DISORDER
     Dosage: Extended release at bedtime
  14. VITAMIN D NOS [Concomitant]
     Indication: PRODUCT USED FOR UNKNOWN INDICATION
  15. IRON [Concomitant]
     Indication: PRODUCT USED FOR UNKNOWN INDICATION
  16. MULTIVITAMIN [Concomitant]
     Indication: VITAMIN SUPPLEMENTATION
     Dosage: Daily
  17. CYMBALTA [Concomitant]
     Indication: PRODUCT USED FOR UNKNOWN INDICATION
     Dosage: 30 mg daily
  18. EQUATE BRAND OTC [Concomitant]
     Indication: GASTROOESOPHAGEAL REFLUX DISEASE
     Dates: end: 20121206

REACTIONS (6)
  - Intestinal obstruction [Recovered/Resolved]
  - Feeling abnormal [Unknown]
  - Hypertension [Unknown]
  - Gastrooesophageal reflux disease [Unknown]
  - Rhinorrhoea [Unknown]
  - Nasal congestion [Unknown]
